FAERS Safety Report 8552716-3 (Version None)
Quarter: 2012Q3

REPORT INFORMATION
  Report Type: 
  Country: None (occurrence: None)
  Receive Date: 20120731
  Receipt Date: 20120723
  Transmission Date: 20120928
  Serious: Yes (Hospitalization, Other)
  Sender: FDA-Public Use
  Company Number: PHHY2012MX064638

PATIENT
  Sex: Female

DRUGS (3)
  1. CALCIUM CARBONATE [Concomitant]
     Indication: OSTEOPOROSIS
     Dosage: 2 DF, QD
     Dates: start: 20090101
  2. LEVOTHYROXINE SODIUM [Concomitant]
     Dosage: 1 DF, QD
     Dates: start: 20090101
  3. ZOLEDRONOC ACID [Suspect]
     Indication: OSTEOPOROSIS
     Dosage: 5MG/100 ML PER YEAR
     Route: 042
     Dates: start: 20110704

REACTIONS (4)
  - METASTASES TO NECK [None]
  - METASTASES TO TRACHEA [None]
  - METASTASES TO OESOPHAGUS [None]
  - THYROID CANCER [None]
